FAERS Safety Report 6584481-3 (Version None)
Quarter: 2010Q1

REPORT INFORMATION
  Report Type: 
  Country: None (occurrence: None)
  Receive Date: 20100213
  Receipt Date: 20100213
  Transmission Date: 20100710
  Serious: Yes (Hospitalization)
  Sender: FDA-Public Use
  Company Number: None

PATIENT
  Age: 17 Year
  Sex: Female
  Weight: 61.2356 kg

DRUGS (2)
  1. BALZIVA-28 [Suspect]
     Indication: MENORRHAGIA
     Dosage: DAILY PO
     Route: 048
     Dates: start: 20090501, end: 20100125
  2. BALZIVA-28 [Suspect]
     Indication: OVARIAN CYST
     Dosage: DAILY PO
     Route: 048
     Dates: start: 20090501, end: 20100125

REACTIONS (8)
  - ABDOMINAL PAIN [None]
  - BURNING SENSATION [None]
  - CHOLECYSTECTOMY [None]
  - DIARRHOEA [None]
  - DIZZINESS [None]
  - HEADACHE [None]
  - NAUSEA [None]
  - VOMITING [None]
